FAERS Safety Report 9936835 (Version 1)
Quarter: 2014Q1

REPORT INFORMATION
  Report Type: Spontaneous
  Country: GB (occurrence: None)
  Receive Date: 20140110
  Receipt Date: 20140110
  Transmission Date: 20141002
  Serious: Yes (Other)
  Sender: FDA-Public Use
  Company Number: E2B_00001434

PATIENT
  Age: 40 Year
  Sex: Female

DRUGS (4)
  1. LEVETIRACETAM [Suspect]
     Indication: PRODUCT USED FOR UNKNOWN INDICATION
     Dosage: TOTAL DAILY DOSE:  2000 (UNITS NOT SPECIFIED) (UNKNOWN, UNKNOWN), UNKNOWN
  2. LACOSAMIDE [Suspect]
     Indication: CONVULSION
     Dosage: TOTAL DAILY DOSE:  300 (UNITS NOT SPECIFIED) (UNKNOWN, UNKNOWN), UNKNOWN??
  3. LAMOTRIGINE (UNKNOWN) (LAMOTRIGINE) [Concomitant]
  4. TOPIRAMATE (UNKNOWN) (TOPIRAMATE) [Concomitant]

REACTIONS (2)
  - Convulsion [None]
  - Drug ineffective [None]
